FAERS Safety Report 17703383 (Version 1)
Quarter: 2020Q2

REPORT INFORMATION
  Report Type: Spontaneous
  Country: FR (occurrence: FR)
  Receive Date: 20200424
  Receipt Date: 20200424
  Transmission Date: 20200714
  Serious: Yes (Other)
  Sender: FDA-Public Use
  Company Number: FR-AUROBINDO-AUR-APL-2020-019827

PATIENT
  Age: 22 Month
  Sex: Female
  Weight: 14.8 kg

DRUGS (8)
  1. AMLODIPINE [Concomitant]
     Active Substance: AMLODIPINE BESYLATE
     Indication: HYPERTENSION
     Dosage: 0.5 MILLIGRAM/KILOGRAM, ONCE A DAY
     Route: 065
  2. TACROLIMUS. [Concomitant]
     Active Substance: TACROLIMUS
     Indication: NEPHROTIC SYNDROME
     Dosage: UNK
     Route: 048
  3. RITUXIMAB. [Concomitant]
     Active Substance: RITUXIMAB
     Indication: NEPHROTIC SYNDROME
     Dosage: UNK
     Route: 065
  4. AMILORIDE [Concomitant]
     Active Substance: AMILORIDE
     Indication: NEPHROTIC SYNDROME
     Dosage: 1 MILLIGRAM/KILOGRAM, ONCE A DAY
     Route: 065
  5. FUROSEMIDE. [Suspect]
     Active Substance: FUROSEMIDE
     Indication: NEPHROTIC SYNDROME
     Dosage: 5 MILLIGRAM/KILOGRAM, ONCE A DAY
     Route: 065
  6. TOLVAPTAN [Interacting]
     Active Substance: TOLVAPTAN
     Dosage: 5 MILLIGRAM, ONCE A DAY (0.33 MG/KG/DAY)
     Route: 065
  7. TOLVAPTAN [Interacting]
     Active Substance: TOLVAPTAN
     Indication: HYPONATRAEMIA
     Dosage: 1 MILLIGRAM/KILOGRAM, EVERY 2 WEEK
     Route: 065
  8. TOLVAPTAN [Interacting]
     Active Substance: TOLVAPTAN
     Dosage: 40 MILLIGRAM
     Route: 065

REACTIONS (2)
  - Drug interaction [Recovering/Resolving]
  - Therapeutic product effect decreased [Recovering/Resolving]
